FAERS Safety Report 4443461-4 (Version None)
Quarter: 2004Q3

REPORT INFORMATION
  Report Type: 
  Country: None (occurrence: None)
  Receive Date: 20040903
  Receipt Date: 20040903
  Transmission Date: 20050211
  Serious: Yes (Life-Threatening, Hospitalization)
  Sender: FDA-Public Use
  Company Number: None

PATIENT
  Age: 94 Year
  Sex: Male

DRUGS (1)
  1. GATIFLOXACIN [Suspect]
     Indication: PNEUMONIA
     Dosage: 200 MG Q DAILY PO
     Route: 048

REACTIONS (4)
  - COMA [None]
  - HYPOGLYCAEMIA [None]
  - LETHARGY [None]
  - TACHYPNOEA [None]
